FAERS Safety Report 22074589 (Version 1)
Quarter: 2023Q1

REPORT INFORMATION
  Report Type: Spontaneous
  Country: US (occurrence: US)
  Receive Date: 20230308
  Receipt Date: 20230308
  Transmission Date: 20230418
  Serious: Yes (Other)
  Sender: FDA-Public Use
  Company Number: US-INSUD PHARMA-2302US01225

PATIENT

DRUGS (2)
  1. TESTOSTERONE [Suspect]
     Active Substance: TESTOSTERONE
     Indication: Hypogonadism
     Dosage: 400 MG BIWEEKLY INTRAMUSCULAR INJECTIONS
     Route: 030
  2. LISINOPRIL [Concomitant]
     Active Substance: LISINOPRIL
     Indication: Hypertension

REACTIONS (8)
  - Open angle glaucoma [Recovered/Resolved]
  - Optic ischaemic neuropathy [Recovered/Resolved]
  - Intraocular pressure increased [Recovered/Resolved]
  - Vision blurred [Unknown]
  - Lacrimation increased [Unknown]
  - Pupillary reflex impaired [Unknown]
  - Conjunctival hyperaemia [Unknown]
  - Corneal oedema [Recovered/Resolved]
